FAERS Safety Report 17036210 (Version 1)
Quarter: 2019Q4

REPORT INFORMATION
  Report Type: Spontaneous
  Country: US (occurrence: US)
  Receive Date: 20191115
  Receipt Date: 20191115
  Transmission Date: 20200122
  Serious: Yes (Other)
  Sender: FDA-Public Use
  Company Number: US-DRREDDYS-USA/USA/19/0116048

PATIENT
  Age: 64 Year
  Sex: Female
  Weight: 91.17 kg

DRUGS (2)
  1. TRAMADOL. [Concomitant]
     Active Substance: TRAMADOL
     Indication: HERPES ZOSTER OTICUS
     Route: 048
     Dates: start: 201603
  2. PREGABALIN. [Suspect]
     Active Substance: PREGABALIN
     Indication: HERPES ZOSTER OTICUS
     Dosage: TOOK ONLY 2 CAPSULES
     Route: 048
     Dates: start: 201910, end: 201910

REACTIONS (5)
  - Feeling abnormal [Recovered/Resolved]
  - Product quality issue [Unknown]
  - Malaise [Recovered/Resolved]
  - Dizziness [Recovered/Resolved]
  - Drug ineffective [Unknown]

NARRATIVE: CASE EVENT DATE: 201910
